FAERS Safety Report 9381994 (Version 2)
Quarter: 2013Q4

REPORT INFORMATION
  Report Type: Spontaneous
  Country: FR (occurrence: FR)
  Receive Date: 20130703
  Receipt Date: 20131223
  Transmission Date: 20140711
  Serious: Yes (Hospitalization)
  Sender: FDA-Public Use
  Company Number: FR-PFIZER INC-2013194568

PATIENT
  Age: 83 Year
  Sex: Male

DRUGS (6)
  1. TRIATEC [Suspect]
     Dosage: 2.5 MG, DAILY
     Route: 048
  2. BISOPROLOL FUMARATE [Suspect]
     Dosage: 10 MG, DAILY
     Route: 048
     Dates: end: 201303
  3. DIOSMIN [Suspect]
     Dosage: 600 MG, DAILY
     Route: 048
  4. LODALES [Suspect]
     Dosage: 10 MG, DAILY
     Route: 048
     Dates: end: 201303
  5. KARDEGIC [Suspect]
     Dosage: 75 MG, DAILY
     Route: 048
  6. PREVISCAN [Suspect]
     Dosage: UNK
     Route: 048

REACTIONS (3)
  - Pulmonary fibrosis [Not Recovered/Not Resolved]
  - Lymphadenopathy mediastinal [Not Recovered/Not Resolved]
  - Pleural effusion [Not Recovered/Not Resolved]
